FAERS Safety Report 21548752 (Version 1)
Quarter: 2022Q4

REPORT INFORMATION
  Report Type: Spontaneous
  Country: US (occurrence: US)
  Receive Date: 20221103
  Receipt Date: 20221103
  Transmission Date: 20230112
  Serious: Yes (Death, Hospitalization)
  Sender: FDA-Public Use
  Company Number: US-MYLANLABS-2022M1120008

PATIENT
  Age: 53 Year
  Sex: Male

DRUGS (1)
  1. METFORMIN [Suspect]
     Active Substance: METFORMIN HYDROCHLORIDE
     Indication: Product used for unknown indication
     Dosage: ACUTE ON CHRONIC INGESTION OF 80G OF HIS METFORMIN TABLETS
     Route: 048

REACTIONS (3)
  - Lactic acidosis [Fatal]
  - Shock [Fatal]
  - Accidental overdose [Fatal]
